FAERS Safety Report 6308206-1 (Version None)
Quarter: 2009Q3

REPORT INFORMATION
  Report Type: 
  Country: None (occurrence: None)
  Receive Date: 20090807
  Receipt Date: 20090804
  Transmission Date: 20100115
  Serious: Yes (Hospitalization)
  Sender: FDA-Public Use
  Company Number: GB-EBEWE-106MTX09

PATIENT
  Age: 45 Year
  Weight: 124 kg

DRUGS (6)
  1. METHOTREXATE [Suspect]
     Indication: RHEUMATOID ARTHRITIS
     Dosage: 15MG Q WEEKLY, SC
     Route: 058
     Dates: start: 20090603
  2. ENBREL [Suspect]
     Indication: RHEUMATOID ARTHRITIS
     Dosage: 50MG Q WEEKLY, SC
     Route: 058
     Dates: start: 20090505, end: 20090529
  3. CIPRALEX [Concomitant]
  4. CYCLIZINE [Concomitant]
  5. FOLIC ACID [Concomitant]
  6. SULFASALAZINE [Concomitant]

REACTIONS (2)
  - CHEST DISCOMFORT [None]
  - DYSPNOEA [None]
